FAERS Safety Report 6915695-8 (Version None)
Quarter: 2010Q3

REPORT INFORMATION
  Report Type: 
  Country: None (occurrence: None)
  Receive Date: 20100810
  Receipt Date: 20100810
  Transmission Date: 20110219
  Serious: Yes (Hospitalization)
  Sender: FDA-Public Use
  Company Number: US-ELI_LILLY_AND_COMPANY-US201005000739

PATIENT
  Sex: Female

DRUGS (9)
  1. FORTEO [Suspect]
     Indication: OSTEOPOROSIS
     Dosage: 20 UG, DAILY (1/D)
     Dates: start: 20090805
  2. POTASSIUM CHLORIDE [Concomitant]
     Dosage: 20 MG, 2/D
  3. SYNTHROID [Concomitant]
     Dosage: 50 MG, DAILY (1/D)
     Dates: start: 19950101
  4. LASIX [Concomitant]
     Dosage: 40 MG, UNK
     Dates: start: 20090101
  5. ZYRTEC [Concomitant]
     Dosage: 10 MG, EACH EVENING
  6. SIMVASTATIN [Concomitant]
     Dosage: 40 MG, UNK
     Dates: start: 20080101
  7. VITAMIN D3 [Concomitant]
     Dosage: 400 IU, UNK
  8. AMBIEN [Concomitant]
     Dosage: 10 MG, DAILY (1/D)
     Dates: start: 20080101
  9. IRON [Concomitant]

REACTIONS (9)
  - ASTHENIA [None]
  - BLOOD PRESSURE DECREASED [None]
  - CHOKING [None]
  - DIZZINESS [None]
  - FATIGUE [None]
  - GAIT DISTURBANCE [None]
  - HOSPITALISATION [None]
  - OESOPHAGEAL DISORDER [None]
  - VOMITING [None]
